FAERS Safety Report 8397447-8 (Version None)
Quarter: 2012Q2

REPORT INFORMATION
  Report Type: 
  Country: None (occurrence: None)
  Receive Date: 20120529
  Receipt Date: 20120529
  Transmission Date: 20120825
  Serious: Yes (Hospitalization)
  Sender: FDA-Public Use
  Company Number: None

PATIENT
  Sex: Female
  Weight: 72 kg

DRUGS (1)
  1. PRADAXA [Suspect]
     Indication: ATRIAL FIBRILLATION
     Dosage: 150MG BID PO
     Route: 048
     Dates: start: 20111101, end: 20111106

REACTIONS (12)
  - ABDOMINAL PAIN [None]
  - DEEP VEIN THROMBOSIS [None]
  - DISSEMINATED INTRAVASCULAR COAGULATION [None]
  - INTRA-ABDOMINAL HAEMORRHAGE [None]
  - TACHYPNOEA [None]
  - SMALL INTESTINAL HAEMORRHAGE [None]
  - CHOLECYSTITIS INFECTIVE [None]
  - POST PROCEDURAL HAEMORRHAGE [None]
  - RENAL FAILURE ACUTE [None]
  - TACHYCARDIA [None]
  - ACUTE RESPIRATORY FAILURE [None]
  - DIARRHOEA [None]
